FAERS Safety Report 11088245 (Version 1)
Quarter: 2015Q2

REPORT INFORMATION
  Report Type: Spontaneous
  Country: US (occurrence: US)
  Receive Date: 20150504
  Receipt Date: 20150504
  Transmission Date: 20150821
  Serious: No
  Sender: FDA-Public Use
  Company Number: US-PFIZER INC-2015142139

PATIENT
  Age: 47 Year
  Sex: Female
  Weight: 64 kg

DRUGS (2)
  1. ZITHROMAX [Suspect]
     Active Substance: AZITHROMYCIN DIHYDRATE
     Indication: SINUSITIS
     Dosage: 250 MG, 1X/DAY (250MG X 2 TABS FIRST DAY/STAT, THEN 1 X 250MG TAB PER DAY)
     Dates: start: 20150306, end: 20150320
  2. ZITHROMAX [Suspect]
     Active Substance: AZITHROMYCIN DIHYDRATE
     Dosage: 500 MG, 1X/DAY (250MG X 2 TABS FIRST DAY/STAT, THEN 1 X 250MG TAB PER DAY)
     Dates: start: 20150306, end: 20150320

REACTIONS (17)
  - Panic attack [Recovered/Resolved]
  - Malaise [Unknown]
  - Drug ineffective [Unknown]
  - Activities of daily living impaired [Unknown]
  - Dysbacteriosis [Unknown]
  - Balance disorder [Recovered/Resolved]
  - Weight decreased [Unknown]
  - Dizziness [Recovered/Resolved]
  - Gastrooesophageal reflux disease [Recovering/Resolving]
  - Drug withdrawal syndrome [Recovering/Resolving]
  - Loss of employment [Unknown]
  - Dyspepsia [Unknown]
  - Dysphagia [Unknown]
  - Palpitations [Unknown]
  - Eating disorder [Recovering/Resolving]
  - Anxiety [Unknown]
  - Constipation [Unknown]

NARRATIVE: CASE EVENT DATE: 20150326
